FAERS Safety Report 4669230-8 (Version None)
Quarter: 2005Q2

REPORT INFORMATION
  Report Type: 
  Country: None (occurrence: None)
  Receive Date: 20050519
  Receipt Date: 20050506
  Transmission Date: 20051028
  Serious: Yes (Hospitalization)
  Sender: FDA-Public Use
  Company Number: 2005BI009144

PATIENT
  Age: 56 Year
  Sex: Male
  Weight: 90 kg

DRUGS (4)
  1. AVONEX [Suspect]
     Indication: MULTIPLE SCLEROSIS
     Dosage: 30 UG;QW;IM
     Route: 030
     Dates: start: 20050228
  2. LISINOPRIL [Concomitant]
  3. ACETYLSALICYLIC ACID [Concomitant]
  4. GLIBENCLAMIDE [Concomitant]

REACTIONS (1)
  - DIZZINESS POSTURAL [None]
